FAERS Safety Report 17782738 (Version 1)
Quarter: 2020Q2

REPORT INFORMATION
  Report Type: Spontaneous
  Country: SA (occurrence: SA)
  Receive Date: 20200514
  Receipt Date: 20200514
  Transmission Date: 20200714
  Serious: Yes (Other)
  Sender: FDA-Public Use
  Company Number: SA-ASTRAZENECA-2020SE63184

PATIENT
  Age: 24 Year
  Sex: Male

DRUGS (1)
  1. XIGDUO XR [Suspect]
     Active Substance: DAPAGLIFLOZIN PROPANEDIOL\METFORMIN HYDROCHLORIDE
     Indication: TYPE 2 DIABETES MELLITUS
     Route: 048
     Dates: start: 20200426, end: 20200503

REACTIONS (1)
  - Ketosis [Recovered/Resolved]

NARRATIVE: CASE EVENT DATE: 20200503
